FAERS Safety Report 4717023-5 (Version None)
Quarter: 2005Q3

REPORT INFORMATION
  Report Type: 
  Country: None (occurrence: None)
  Receive Date: 20050719
  Receipt Date: 20050623
  Transmission Date: 20060218
  Serious: Yes (Other)
  Sender: FDA-Public Use
  Company Number: GB-BRISTOL-MYERS SQUIBB COMPANY-13014915

PATIENT
  Age: 44 Year
  Sex: Female
  Weight: 65 kg

DRUGS (6)
  1. ABILIFY [Suspect]
     Indication: PSYCHOTIC DISORDER
     Dosage: DECREASED TO 10 MG/DAY FROM 20-JUN TO 26-JUN-2005 DECREASED TO 5 MG/DAY FROM 27-JUN TO 30-JUN-2005
     Route: 048
     Dates: start: 20040701, end: 20050630
  2. CITALOPRAM [Concomitant]
     Route: 048
  3. TRAZODONE HCL [Concomitant]
     Dosage: DOSAEG: REDUCED TO 100MG DAILY ON 20-JUN-2005
     Route: 048
  4. ZOPICLONE [Concomitant]
     Dosage: DOSAGE: REDUCED TO 3.75MG DAILY ON 20-JUN-2005
     Route: 048
  5. PROMETHAZINE [Concomitant]
     Dosage: DOSAGE: 25-50MG DAILY AS NEEDED
     Route: 048
  6. DIAZEPAM [Concomitant]
     Route: 048
     Dates: end: 20050501

REACTIONS (2)
  - ABORTION SPONTANEOUS [None]
  - PREGNANCY [None]
